FAERS Safety Report 8328013-8 (Version None)
Quarter: 2012Q2

REPORT INFORMATION
  Report Type: 
  Country: None (occurrence: None)
  Receive Date: 20120502
  Receipt Date: 20120427
  Transmission Date: 20120825
  Serious: Yes (Other)
  Sender: FDA-Public Use
  Company Number: US-BAYER-2012-025922

PATIENT
  Age: 56 Year
  Sex: Female
  Weight: 87.528 kg

DRUGS (11)
  1. BACLOFEN [Concomitant]
     Dosage: 10 MG, UNK
  2. BETASERON [Suspect]
     Dosage: .3 MG, QOD
     Route: 058
     Dates: start: 20111201
  3. LIPITOR [Concomitant]
     Dosage: 10 MG, QD
  4. CYCLOBENZAPRINE [Concomitant]
     Dosage: 2.5 MG, UNK
  5. BETASERON [Suspect]
     Dosage: 8 MIU, UNK
     Route: 058
  6. PROVIGIL [Concomitant]
     Indication: PRODUCT USED FOR UNKNOWN INDICATION
     Dosage: 200  MG BID
  7. OMEPRAZOLE [Concomitant]
     Dosage: 40 MG, UNK
  8. LISINOPRIL [Concomitant]
  9. CYMBALTA [Concomitant]
     Dosage: 30 MG, UNK
  10. BETASERON [Suspect]
     Indication: MULTIPLE SCLEROSIS
     Dosage: UNK
     Dates: start: 20111114
  11. IBUPROFEN [Concomitant]
     Indication: PRODUCT USED FOR UNKNOWN INDICATION
     Dosage: 600 MG, UNK

REACTIONS (7)
  - OROPHARYNGEAL BLISTERING [None]
  - STOMATITIS [None]
  - TOOTHACHE [None]
  - LIP SWELLING [None]
  - URTICARIA [None]
  - LIP BLISTER [None]
  - ORAL PAIN [None]
